FAERS Safety Report 8784763 (Version 1)
Quarter: 2012Q4

REPORT INFORMATION
  Report Type: Spontaneous
  Country: US (occurrence: None)
  Receive Date: 20120907
  Receipt Date: 20120907
  Transmission Date: 20130627
  Serious: Yes (Life-Threatening)
  Sender: FDA-Public Use
  Company Number: None

PATIENT
  Age: 61 Year
  Sex: Female
  Weight: 127.01 kg

DRUGS (1)
  1. IRBESARTAN [Suspect]
     Indication: BLOOD PRESSURE HIGH
     Route: 048
     Dates: start: 20120610, end: 20120625

REACTIONS (9)
  - Anger [None]
  - Crying [None]
  - Irritability [None]
  - Dyspnoea [None]
  - Muscle spasms [None]
  - Insomnia [None]
  - Chest pain [None]
  - Gait disturbance [None]
  - Personality change [None]
